FAERS Safety Report 11922438 (Version 1)
Quarter: 2016Q1

REPORT INFORMATION
  Report Type: Spontaneous
  Country: BR (occurrence: BR)
  Receive Date: 20160115
  Receipt Date: 20160115
  Transmission Date: 20160526
  Serious: Yes (Other)
  Sender: FDA-Public Use
  Company Number: BR-PFIZER INC-2014251159

PATIENT
  Sex: Female

DRUGS (1)
  1. FRONTAL SL [Suspect]
     Active Substance: ACETAMINOPHEN\PHENYLPROPANOLAMINE HYDROCHLORIDE\PHENYLTOLOXAMINE
     Dosage: UNK

REACTIONS (3)
  - Activities of daily living impaired [Unknown]
  - Drug dependence [Unknown]
  - Suicide attempt [Unknown]
